FAERS Safety Report 15767878 (Version 1)
Quarter: 2018Q4

REPORT INFORMATION
  Report Type: Spontaneous
  Country: DE (occurrence: DE)
  Receive Date: 20181227
  Receipt Date: 20181227
  Transmission Date: 20190205
  Serious: Yes (Hospitalization, Other)
  Sender: FDA-Public Use
  Company Number: DE-PFIZER INC-2018523559

PATIENT
  Age: 73 Year
  Sex: Female
  Weight: 66 kg

DRUGS (18)
  1. PERTUZUMAB. [Suspect]
     Active Substance: PERTUZUMAB
     Dosage: UNK
     Dates: start: 20130704
  2. VOCADO [Concomitant]
     Active Substance: AMLODIPINE BESYLATE\OLMESARTAN MEDOXOMIL
     Dosage: UNK, DAILY (TOTAL DAILY DOSE: 40/5/12.5MG)
     Dates: start: 20120827
  3. DEXAMETHASONE. [Concomitant]
     Active Substance: DEXAMETHASONE
     Dosage: UNK (0.2 UNITS NOT REPORTED)
     Dates: start: 20130110
  4. HERCEPTIN [Suspect]
     Active Substance: TRASTUZUMAB
     Dosage: UNK
     Route: 065
     Dates: start: 20130704
  5. PERTUZUMAB. [Suspect]
     Active Substance: PERTUZUMAB
     Indication: BREAST CANCER
     Dosage: UNK
     Route: 042
     Dates: start: 20130404, end: 20130521
  6. EMEND [Concomitant]
     Active Substance: APREPITANT
     Dosage: 125 MG, UNK
     Dates: start: 20130110, end: 20130314
  7. TORASEMID [Concomitant]
     Active Substance: TORSEMIDE
     Dosage: UNK
     Dates: start: 20120924
  8. TAXOL [Suspect]
     Active Substance: PACLITAXEL
     Indication: BREAST CANCER
     Dosage: 145 MG, UNK
     Route: 042
     Dates: start: 20130404
  9. PRAVASTATIN. [Concomitant]
     Active Substance: PRAVASTATIN
     Dosage: UNK
     Dates: start: 20120924
  10. UROMITEXAN [Concomitant]
     Active Substance: MESNA
     Dosage: 400 MG, UNK
     Dates: start: 20130110
  11. TAVEGIL [CLEMASTINE FUMARATE] [Concomitant]
     Dosage: 2 MG, UNK
     Dates: start: 20130404
  12. EPIRUBICIN HCL [Suspect]
     Active Substance: EPIRUBICIN HYDROCHLORIDE
     Indication: HER-2 POSITIVE BREAST CANCER
     Dosage: 170 MG/M2, EVERY 3 WEEKS
     Route: 042
     Dates: start: 20130110
  13. CYCLOPHOSPHAMIDE. [Suspect]
     Active Substance: CYCLOPHOSPHAMIDE
     Dosage: 600 MG/M2, EVERY 3 WEEKS
     Route: 042
  14. GRANISETRON [Concomitant]
     Active Substance: GRANISETRON
     Dosage: UNK (0.2 UNITS NOT REPORTED)
     Dates: start: 20130110
  15. VERAPAMIL [Concomitant]
     Active Substance: VERAPAMIL HYDROCHLORIDE
     Dosage: UNK
     Dates: start: 20080114
  16. BERLINSULIN H [Concomitant]
     Dosage: UNK
     Dates: start: 20060215
  17. CYCLOPHOSPHAMIDE. [Suspect]
     Active Substance: CYCLOPHOSPHAMIDE
     Indication: HER-2 POSITIVE BREAST CANCER
     Dosage: 130 MG, 1X/DAY
     Route: 042
     Dates: start: 20130110
  18. HERCEPTIN [Suspect]
     Active Substance: TRASTUZUMAB
     Indication: BREAST CANCER
     Dosage: 6 MG/KG, EVERY 3 WEEKS
     Route: 042
     Dates: start: 20130404, end: 20130521

REACTIONS (6)
  - Haemoglobin decreased [Recovering/Resolving]
  - Neutropenia [Recovered/Resolved]
  - Blood sodium decreased [Unknown]
  - Blood alkaline phosphatase increased [Unknown]
  - C-reactive protein increased [Recovering/Resolving]
  - Fatigue [Not Recovered/Not Resolved]

NARRATIVE: CASE EVENT DATE: 20130123
